FAERS Safety Report 7877906-4 (Version None)
Quarter: 2011Q4

REPORT INFORMATION
  Report Type: 
  Country: None (occurrence: None)
  Receive Date: 20111031
  Receipt Date: 20111019
  Transmission Date: 20120403
  Serious: Yes (Congenital Anomaly)
  Sender: FDA-Public Use
  Company Number: FR-GILEAD-2011-0042387

PATIENT
  Sex: Female

DRUGS (4)
  1. TRUVADA [Suspect]
     Indication: HIV INFECTION
     Route: 064
     Dates: start: 20080809
  2. INVIRASE [Concomitant]
     Route: 064
     Dates: start: 20080809
  3. KIVEXA [Concomitant]
     Route: 064
  4. KALETRA [Concomitant]
     Route: 064
     Dates: end: 20080801

REACTIONS (1)
  - ENLARGED CLITORIS [None]
